FAERS Safety Report 14269893 (Version 1)
Quarter: 2017Q4

REPORT INFORMATION
  Report Type: Spontaneous
  Country: FR (occurrence: FR)
  Receive Date: 20171211
  Receipt Date: 20171211
  Transmission Date: 20180321
  Serious: Yes (Hospitalization, Other)
  Sender: FDA-Public Use
  Company Number: FR-OTSUKA-DJ201308463

PATIENT
  Age: 0 Day
  Sex: Male
  Weight: 3.26 kg

DRUGS (5)
  1. TERCIAN [Suspect]
     Active Substance: CYAMEMAZINE
     Indication: PRODUCT USED FOR UNKNOWN INDICATION
     Dosage: 25 MG, QD (FILM COATED TABS,DOSE VALUE 12.5MG )
     Route: 064
     Dates: start: 2012, end: 20130708
  2. SERESTA [Suspect]
     Active Substance: OXAZEPAM
     Indication: PRODUCT USED FOR UNKNOWN INDICATION
     Dosage: 25 MG, BID (DOSE VALUE:50MG,20MG SCORED TAB)
     Route: 064
     Dates: start: 2012, end: 20130708
  3. ABILIFY [Suspect]
     Active Substance: ARIPIPRAZOLE
     Indication: PRODUCT USED FOR UNKNOWN INDICATION
     Dosage: 10 MG, QD
     Route: 064
     Dates: start: 2012, end: 20130708
  4. SEROPLEX [Suspect]
     Active Substance: ESCITALOPRAM OXALATE
     Indication: PRODUCT USED FOR UNKNOWN INDICATION
     Dosage: 20 MG, QD (20MG FILM COATED TABS)
     Route: 064
     Dates: start: 2012, end: 20130708
  5. LEXAPRO [Suspect]
     Active Substance: ESCITALOPRAM OXALATE
     Indication: PRODUCT USED FOR UNKNOWN INDICATION
     Dosage: 20 MG, QD
     Route: 064
     Dates: start: 2012, end: 20130708

REACTIONS (5)
  - Foetal exposure during pregnancy [Unknown]
  - Tremor [Recovered/Resolved]
  - Jaundice neonatal [Unknown]
  - Neonatal hypoxia [Recovered/Resolved]
  - Drug withdrawal syndrome neonatal [Recovered/Resolved]

NARRATIVE: CASE EVENT DATE: 20130708
